FAERS Safety Report 4334698-3 (Version None)
Quarter: 2004Q2

REPORT INFORMATION
  Report Type: 
  Country: None (occurrence: None)
  Receive Date: 20040407
  Receipt Date: 20040407
  Transmission Date: 20050107
  Serious: Yes (Hospitalization)
  Sender: FDA-Public Use
  Company Number: None

PATIENT
  Sex: Male

DRUGS (4)
  1. CHLOR-TRIPOLON TABLETS [Suspect]
     Indication: MULTIPLE ALLERGIES
     Dosage: 4 MG ORAL
     Route: 048
     Dates: start: 20040221, end: 20040221
  2. METOPROLOL [Concomitant]
  3. ASPIRIN [Concomitant]
  4. NITROGLYCERIN [Concomitant]

REACTIONS (4)
  - DIZZINESS [None]
  - FEELING ABNORMAL [None]
  - MYOCARDIAL INFARCTION [None]
  - NAUSEA [None]
